FAERS Safety Report 5134927-2 (Version None)
Quarter: 2006Q4

REPORT INFORMATION
  Report Type: 
  Country: None (occurrence: None)
  Receive Date: 20061019
  Receipt Date: 20061005
  Transmission Date: 20070319
  Serious: Yes (Other)
  Sender: FDA-Public Use
  Company Number: 2006EN000005

PATIENT
  Age: 44 Year
  Sex: Female
  Weight: 60.3284 kg

DRUGS (1)
  1. OPANA ER [Suspect]
     Indication: BACK PAIN
     Dosage: 10 MG; TID; PO
     Route: 048
     Dates: start: 20060925, end: 20061004

REACTIONS (1)
  - SUICIDAL IDEATION [None]
